FAERS Safety Report 22285747 (Version 2)
Quarter: 2023Q2

REPORT INFORMATION
  Report Type: Spontaneous
  Country: GB (occurrence: GB)
  Receive Date: 20230504
  Receipt Date: 20230512
  Transmission Date: 20230721
  Serious: Yes (Other)
  Sender: FDA-Public Use
  Company Number: GB-JNJFOC-20230461943

PATIENT
  Sex: Female

DRUGS (3)
  1. ACETAMINOPHEN [Suspect]
     Active Substance: ACETAMINOPHEN
     Indication: Product used for unknown indication
     Dosage: 4/8 TABLETS A DAY
     Route: 065
     Dates: start: 2004
  2. IBUPROFEN [Suspect]
     Active Substance: IBUPROFEN
     Indication: Product used for unknown indication
     Dosage: 4/8 TABLETS A DAY
     Route: 065
     Dates: start: 2004
  3. LYSERGIDE [Suspect]
     Active Substance: LYSERGIDE
     Indication: Product used for unknown indication
     Dosage: 4/8 TABLETS A DAY
     Route: 065
     Dates: start: 2004

REACTIONS (8)
  - Arrhythmia [Unknown]
  - Dysgeusia [Unknown]
  - Abdominal discomfort [Unknown]
  - Lethargy [Unknown]
  - Sleep disorder [Unknown]
  - Product packaging issue [Unknown]
  - Headache [Unknown]
  - Dizziness [Unknown]
